FAERS Safety Report 5972444-8 (Version None)
Quarter: 2008Q4

REPORT INFORMATION
  Report Type: 
  Country: None (occurrence: None)
  Receive Date: 20081125
  Receipt Date: 20081110
  Transmission Date: 20090506
  Serious: Yes (Hospitalization)
  Sender: FDA-Public Use
  Company Number: TAP2008Q00961

PATIENT
  Age: 85 Year
  Sex: Male
  Weight: 63.6 kg

DRUGS (13)
  1. PREVACID [Suspect]
     Indication: GASTROOESOPHAGEAL REFLUX DISEASE
     Dosage: (30 MG,AS REQUIRED), PER ORAL
     Route: 048
     Dates: start: 20080101
  2. SIMVASTATIN [Concomitant]
  3. ASPIRIN [Concomitant]
  4. TAMSULOSIN HCL [Concomitant]
  5. FERROUS SULFATE TAB [Concomitant]
  6. FOLIC ACID [Concomitant]
  7. DOCUSATE SODIUM (DOCUSATE SODIUM) [Concomitant]
  8. FUROSEMIDE [Concomitant]
  9. COUMADIN [Concomitant]
  10. POTASSIUM CHLORIDE [Concomitant]
  11. AMIODARONE HCL [Concomitant]
  12. MONTELUKAST SODIUM [Concomitant]
  13. LIPITOR [Concomitant]

REACTIONS (6)
  - ASTHENIA [None]
  - CONDITION AGGRAVATED [None]
  - DIARRHOEA [None]
  - DYSPNOEA [None]
  - MITRAL VALVE DISEASE [None]
  - POST PROCEDURAL COMPLICATION [None]
